FAERS Safety Report 4501172-0 (Version None)
Quarter: 2004Q4

REPORT INFORMATION
  Report Type: 
  Country: None (occurrence: None)
  Receive Date: 20041115
  Receipt Date: 20041108
  Transmission Date: 20050328
  Serious: Yes (Hospitalization)
  Sender: FDA-Public Use
  Company Number: PHBS2004ES14971

PATIENT
  Age: 25 Year
  Sex: Female

DRUGS (5)
  1. SYNTOCINON [Suspect]
     Indication: ABORTION
     Dosage: 10 UNITS
     Route: 042
     Dates: start: 20040518, end: 20040518
  2. CYTOTEC [Concomitant]
  3. NOLOTIL [Concomitant]
  4. DOLANTINA [Concomitant]
  5. HALOPERIDOL [Concomitant]

REACTIONS (2)
  - FACE OEDEMA [None]
  - RESPIRATORY FAILURE [None]
